FAERS Safety Report 23358388 (Version 1)
Quarter: 2024Q1

REPORT INFORMATION
  Report Type: Report from Study
  Country: AT (occurrence: AT)
  Receive Date: 20240102
  Receipt Date: 20240102
  Transmission Date: 20240409
  Serious: Yes (Hospitalization)
  Sender: FDA-Public Use
  Company Number: AT-Merck Healthcare KGaA-2023497371

PATIENT
  Sex: Male

DRUGS (1)
  1. SAIZEN [Suspect]
     Active Substance: SOMATROPIN
     Indication: Growth hormone deficiency
     Dosage: EASYPOD, SERIAL NUMBER: 1371605271170891
     Route: 058

REACTIONS (1)
  - Mental disorder [Not Recovered/Not Resolved]
